FAERS Safety Report 5524546-8 (Version None)
Quarter: 2007Q4

REPORT INFORMATION
  Report Type: 
  Country: None (occurrence: None)
  Receive Date: 20071123
  Receipt Date: 20071109
  Transmission Date: 20080405
  Serious: Yes (Hospitalization)
  Sender: FDA-Public Use
  Company Number: GB-RANBAXY-2007RR-07975

PATIENT

DRUGS (4)
  1. ISOTRETINOIN [Suspect]
     Indication: ACNE
     Dosage: 25 MG, QD
     Route: 065
  2. ISOTRETINOIN [Suspect]
     Dosage: 5 MG, QD
  3. ERYTHROMYCIN [Concomitant]
     Indication: ACNE
     Route: 048
  4. SULFASALAZINE [Concomitant]
     Indication: ACNE FULMINANS
     Dosage: 2 G, UNK

REACTIONS (7)
  - ACNE FULMINANS [None]
  - BACK PAIN [None]
  - IMMOBILE [None]
  - LEUKOCYTOSIS [None]
  - NEUTROPHILIA [None]
  - OSTEOMYELITIS [None]
  - SAPHO SYNDROME [None]
